FAERS Safety Report 9705057 (Version 3)
Quarter: 2015Q1

REPORT INFORMATION
  Report Type: Spontaneous
  Country: US (occurrence: US)
  Receive Date: 20131122
  Receipt Date: 20150326
  Transmission Date: 20150721
  Serious: Yes (Life-Threatening, Hospitalization, Other)
  Sender: FDA-Public Use
  Company Number: US-BAYER-2013-139596

PATIENT
  Age: 27 Year
  Sex: Female
  Weight: 83.9 kg

DRUGS (7)
  1. PERCOCET [Concomitant]
     Active Substance: ACETAMINOPHEN\OXYCODONE HYDROCHLORIDE
     Dosage: 5 MG - 325 MG
  2. CYTOTEC [Concomitant]
     Active Substance: MISOPROSTOL
     Dosage: 200 MCG
  3. MIRENA [Suspect]
     Active Substance: LEVONORGESTREL
     Indication: CONTRACEPTION
     Dosage: 20 MCG/24HR, CONT
     Route: 015
     Dates: start: 200210, end: 200712
  4. ORTHO TRI CYCLEN [Concomitant]
     Active Substance: ETHINYL ESTRADIOL\NORGESTIMATE
  5. XANAX [Concomitant]
     Active Substance: ALPRAZOLAM
  6. MIRENA [Suspect]
     Active Substance: LEVONORGESTREL
     Indication: CONTRACEPTION
     Dosage: 20 MCG/24HR, CONT
     Route: 015
     Dates: start: 200712, end: 20130522
  7. IBUPROFEN. [Concomitant]
     Active Substance: IBUPROFEN
     Dosage: 800 MG, UNK

REACTIONS (17)
  - Ovarian cyst [Not Recovered/Not Resolved]
  - General physical health deterioration [None]
  - Anhedonia [None]
  - Uterine malposition [None]
  - Genital haemorrhage [None]
  - Device difficult to use [None]
  - Device defective [None]
  - Emotional distress [None]
  - Hormone level abnormal [Not Recovered/Not Resolved]
  - Embedded device [None]
  - Embedded device [None]
  - Abdominal pain lower [None]
  - Neoplasm [None]
  - Injury [None]
  - Device misuse [None]
  - Abdominal pain [None]
  - Anxiety [None]

NARRATIVE: CASE EVENT DATE: 201210
